FAERS Safety Report 9396717 (Version 4)
Quarter: 2013Q3

REPORT INFORMATION
  Report Type: Spontaneous
  Country: US (occurrence: US)
  Receive Date: 20130712
  Receipt Date: 20130901
  Transmission Date: 20140515
  Serious: Yes (Other)
  Sender: FDA-Public Use
  Company Number: US-JNJFOC-20130701243

PATIENT
  Age: 51 Year
  Sex: Female
  Weight: 86.18 kg

DRUGS (2)
  1. ROGAINE REGULAR STRENGTH WOMEN (2%) [Suspect]
     Route: 061
  2. ROGAINE REGULAR STRENGTH WOMEN (2%) [Suspect]
     Indication: ALOPECIA
     Dosage: MORNING AND NIGHT
     Route: 061
     Dates: start: 20130620, end: 20130629

REACTIONS (12)
  - Skin infection [Recovering/Resolving]
  - Hypersensitivity [Recovering/Resolving]
  - Erythema [Not Recovered/Not Resolved]
  - Skin discolouration [Not Recovered/Not Resolved]
  - Rash macular [Recovering/Resolving]
  - Scab [Recovering/Resolving]
  - Eye swelling [Recovering/Resolving]
  - Acne [Recovering/Resolving]
  - Pruritus [Recovering/Resolving]
  - Swelling face [Recovering/Resolving]
  - Pruritus [Recovering/Resolving]
  - Rash [Recovering/Resolving]
